FAERS Safety Report 4485189-0 (Version None)
Quarter: 2004Q4

REPORT INFORMATION
  Report Type: 
  Country: None (occurrence: None)
  Receive Date: 20041026
  Receipt Date: 20040315
  Transmission Date: 20050328
  Serious: No
  Sender: FDA-Public Use
  Company Number: US-BRISTOL-MYERS SQUIBB COMPANY-12532735

PATIENT
  Age: 64 Year
  Sex: Male
  Weight: 83 kg

DRUGS (8)
  1. GLUCOPHAGE XR [Suspect]
     Indication: DIABETES MELLITUS NON-INSULIN-DEPENDENT
     Route: 048
  2. PROPRANOLOL HCL [Concomitant]
  3. LIPITOR [Concomitant]
  4. RANITIDINE [Concomitant]
  5. MULTI-VITAMIN [Concomitant]
  6. OMEGA-3 [Concomitant]
  7. VITAMIN C [Concomitant]
  8. RELAFEN [Concomitant]

REACTIONS (2)
  - RASH [None]
  - WEIGHT DECREASED [None]
